FAERS Safety Report 25861211 (Version 3)
Quarter: 2025Q4

REPORT INFORMATION
  Report Type: Spontaneous
  Country: TR (occurrence: TR)
  Receive Date: 20250929
  Receipt Date: 20251016
  Transmission Date: 20260118
  Serious: Yes (Life-Threatening, Hospitalization, Other)
  Sender: MERCK SHARP & DOHME LLC
  Company Number: TR-009507513-2331065

PATIENT
  Sex: Female

DRUGS (2)
  1. KEYTRUDA [Suspect]
     Active Substance: PEMBROLIZUMAB
     Indication: Bladder cancer
     Dosage: CYCLE 1
     Route: 065
     Dates: start: 202412
  2. KEYTRUDA [Suspect]
     Active Substance: PEMBROLIZUMAB
     Indication: Bladder cancer
     Dosage: CYCLE 2
     Route: 065
     Dates: start: 202502

REACTIONS (12)
  - Laboratory test abnormal [Unknown]
  - Melanocytic naevus [Unknown]
  - Skin burning sensation [Unknown]
  - Onychomadesis [Unknown]
  - Erythema [Unknown]
  - Blister [Unknown]
  - Fluid retention [Unknown]
  - Adverse event [Unknown]
  - Hypothyroidism [Unknown]
  - Skin hyperpigmentation [Recovering/Resolving]
  - Asthenia [Unknown]
  - Dysstasia [Unknown]

NARRATIVE: CASE EVENT DATE: 20250101
